FAERS Safety Report 6317506-0 (Version None)
Quarter: 2009Q3

REPORT INFORMATION
  Report Type: 
  Country: None (occurrence: None)
  Receive Date: 20090821
  Receipt Date: 20090811
  Transmission Date: 20100115
  Serious: Yes (Death, Other)
  Sender: FDA-Public Use
  Company Number: US-BAYER-200928101GPV

PATIENT
  Age: 62 Year
  Sex: Female

DRUGS (8)
  1. CAMPATH [Suspect]
     Indication: CHRONIC LYMPHOCYTIC LEUKAEMIA
     Dosage: UPTO 6 DOSES PER MONTH (THREE TIMES A WEEK)
     Route: 065
     Dates: start: 20070109, end: 20080701
  2. REVLIMID [Suspect]
     Indication: CHRONIC LYMPHOCYTIC LEUKAEMIA
     Route: 048
     Dates: start: 20070222, end: 20070201
  3. REVLIMID [Suspect]
     Dosage: 5 MG DOSE ESCALATION TO 20 MG DAILY
     Route: 048
     Dates: start: 20070226, end: 20070503
  4. REVLIMID [Suspect]
     Route: 048
     Dates: start: 20071005, end: 20071015
  5. PROCRIT [Concomitant]
     Dosage: UNK
     Route: 065
  6. ACYCLOVIR [Concomitant]
     Dosage: UNK
     Route: 065
  7. SEPTRA DS [Concomitant]
     Dosage: UNK
     Route: 065
  8. FERROUS SUL TAB [Concomitant]
     Dosage: UNK
     Route: 065

REACTIONS (5)
  - CHRONIC LYMPHOCYTIC LEUKAEMIA [None]
  - DEATH [None]
  - MALIGNANT PLEURAL EFFUSION [None]
  - NAUSEA [None]
  - WHITE BLOOD CELL COUNT INCREASED [None]
